FAERS Safety Report 5531673-8 (Version None)
Quarter: 2007Q4

REPORT INFORMATION
  Report Type: 
  Country: None (occurrence: None)
  Receive Date: 20071203
  Receipt Date: 20071122
  Transmission Date: 20080405
  Serious: Yes (Hospitalization)
  Sender: FDA-Public Use
  Company Number: GB-AMGEN-UK254260

PATIENT
  Sex: Female
  Weight: 77 kg

DRUGS (3)
  1. NEULASTA [Suspect]
     Indication: CHEMOTHERAPY
     Dates: start: 20070912
  2. XELODA [Suspect]
     Route: 048
     Dates: start: 20071113, end: 20071116
  3. EPIRUBICIN [Suspect]
     Route: 065
     Dates: start: 20070912

REACTIONS (1)
  - MYOCARDIAL INFARCTION [None]
